FAERS Safety Report 12092915 (Version 1)
Quarter: 2016Q1

REPORT INFORMATION
  Report Type: Spontaneous
  Country: US (occurrence: None)
  Receive Date: 20160218
  Receipt Date: 20160218
  Transmission Date: 20160526
  Serious: No
  Sender: FDA-Public Use
  Company Number: None

PATIENT
  Age: 32 Year
  Sex: Female

DRUGS (1)
  1. HUMIRA [Suspect]
     Active Substance: ADALIMUMAB
     Indication: HIDRADENITIS
     Dosage: 40MG EVERY 7 DAYS SUBCUTANEOUSLY
     Route: 058
     Dates: start: 20150310

REACTIONS (1)
  - Rash [None]

NARRATIVE: CASE EVENT DATE: 20160115
